FAERS Safety Report 5135290-3 (Version None)
Quarter: 2006Q4

REPORT INFORMATION
  Report Type: 
  Country: None (occurrence: None)
  Receive Date: 20061024
  Receipt Date: 20061024
  Transmission Date: 20070319
  Serious: Yes (Other)
  Sender: FDA-Public Use
  Company Number: None

PATIENT
  Sex: Male

DRUGS (6)
  1. MOMETASONE   220 MCG [Suspect]
     Indication: CHRONIC OBSTRUCTIVE PULMONARY DISEASE
     Dosage: 220 MCG  DAILY  PO  (DURATION: 1 DOSE)
     Route: 048
     Dates: start: 20060910, end: 20060910
  2. DILTIAZEM HCL [Concomitant]
  3. LISINOPRIL [Concomitant]
  4. MONTELUKAST [Concomitant]
  5. SILDENAFIL [Concomitant]
  6. WARFARIN SODIUM [Concomitant]

REACTIONS (1)
  - DYSPNOEA [None]
